FAERS Safety Report 11699077 (Version 2)
Quarter: 2015Q4

REPORT INFORMATION
  Report Type: Spontaneous
  Country: US (occurrence: US)
  Receive Date: 20151104
  Receipt Date: 20151202
  Transmission Date: 20160304
  Serious: Yes (Other)
  Sender: FDA-Public Use
  Company Number: US-AMNEAL PHARMACEUTICALS-2015AMN00174

PATIENT
  Age: 21 Year
  Sex: Female
  Weight: 50.79 kg

DRUGS (6)
  1. CEPHALOSPORIN [Concomitant]
     Active Substance: UNSPECIFIED INGREDIENT
     Indication: AMNIOTIC CAVITY INFECTION
  2. AZATHIOPRINE. [Suspect]
     Active Substance: AZATHIOPRINE
     Indication: SYSTEMIC LUPUS ERYTHEMATOSUS
     Dosage: 50 MG, 1X/DAY
     Route: 048
     Dates: start: 20150320, end: 20150928
  3. CHLOROQUINE. [Concomitant]
     Active Substance: CHLOROQUINE
     Indication: SYSTEMIC LUPUS ERYTHEMATOSUS
     Dosage: 125-250MG DAILY
     Route: 048
     Dates: start: 2014
  4. CELLCEPT [Suspect]
     Active Substance: MYCOPHENOLATE MOFETIL\MYCOPHENOLATE MOFETIL HYDROCHLORIDE
     Indication: SYSTEMIC LUPUS ERYTHEMATOSUS
     Dosage: 1500 MG, 2X/DAY
     Route: 048
     Dates: end: 20150316
  5. CEPHALOSPORIN [Concomitant]
     Active Substance: UNSPECIFIED INGREDIENT
     Indication: URINARY TRACT INFECTION
     Dosage: UNK
     Dates: start: 20150923, end: 20150930
  6. PREDNISOLONE. [Concomitant]
     Active Substance: PREDNISOLONE
     Indication: SYSTEMIC LUPUS ERYTHEMATOSUS
     Dosage: 5-20MG/ DAILY
     Route: 048
     Dates: start: 2009

REACTIONS (4)
  - Amniotic cavity infection [Not Recovered/Not Resolved]
  - Exposure during pregnancy [Not Recovered/Not Resolved]
  - Thrombosis [Unknown]
  - Premature rupture of membranes [Not Recovered/Not Resolved]

NARRATIVE: CASE EVENT DATE: 20150928
